FAERS Safety Report 6876075-7 (Version None)
Quarter: 2010Q3

REPORT INFORMATION
  Report Type: 
  Country: None (occurrence: None)
  Receive Date: 20100723
  Receipt Date: 20100709
  Transmission Date: 20110219
  Serious: Yes (Other)
  Sender: FDA-Public Use
  Company Number: 1000015180

PATIENT
  Sex: Female

DRUGS (1)
  1. ESCITALOPRAM [Suspect]
     Dosage: 10 MG (10 MG,  1 IN 1 D), ORAL
     Route: 048

REACTIONS (2)
  - CONDITION AGGRAVATED [None]
  - VITREOUS DETACHMENT [None]
